FAERS Safety Report 4417622-4 (Version None)
Quarter: 2004Q3

REPORT INFORMATION
  Report Type: 
  Country: None (occurrence: None)
  Receive Date: 20040803
  Receipt Date: 20040714
  Transmission Date: 20050211
  Serious: Yes (Hospitalization)
  Sender: FDA-Public Use
  Company Number: 2004SE01664

PATIENT
  Age: 59 Year
  Sex: Female
  Weight: 50 kg

DRUGS (3)
  1. TCV-116 [Suspect]
     Indication: ESSENTIAL HYPERTENSION
     Dates: start: 20030921, end: 20031115
  2. TCV-116 [Suspect]
     Indication: ESSENTIAL HYPERTENSION
     Dates: start: 20031116, end: 20040110
  3. TCV-116 [Suspect]
     Indication: ESSENTIAL HYPERTENSION
     Dosage: 8 MG QD PO
     Route: 048
     Dates: start: 20030728, end: 20030920

REACTIONS (5)
  - BLOOD CHOLESTEROL INCREASED [None]
  - BLOOD PRESSURE INCREASED [None]
  - BLOOD TRIGLYCERIDES INCREASED [None]
  - CEREBRAL INFARCTION [None]
  - CIRCULATORY COLLAPSE [None]
